FAERS Safety Report 8021670-5 (Version None)
Quarter: 2012Q1

REPORT INFORMATION
  Report Type: 
  Country: None (occurrence: None)
  Receive Date: 20120104
  Receipt Date: 20120104
  Transmission Date: 20120608
  Serious: No
  Sender: FDA-Public Use
  Company Number: None

PATIENT
  Sex: Male

DRUGS (6)
  1. HYDROCODONE/ACETAMINOPHEN 10 MG/325 MG [Concomitant]
     Route: 048
  2. HYDROCODONE BITARTRATE AND ACETAMINOPHEN [Suspect]
     Indication: BREAKTHROUGH PAIN
     Dosage: 1 TO 2 TABLETS AS NEEDED
     Route: 048
     Dates: start: 20111230, end: 20111231
  3. OXYCONTIN [Concomitant]
     Route: 048
  4. FLUCONAZOLE [Concomitant]
     Route: 048
  5. ALBUTEROL SULFATE AND IPRATROPIUM BROMIDE [Concomitant]
     Route: 045
  6. PROMETHAZINE [Concomitant]
     Route: 048

REACTIONS (3)
  - PRODUCT SUBSTITUTION ISSUE [None]
  - NAUSEA [None]
  - VOMITING [None]
